FAERS Safety Report 9492537 (Version 3)
Quarter: 2013Q4

REPORT INFORMATION
  Report Type: Spontaneous
  Country: US (occurrence: US)
  Receive Date: 20130830
  Receipt Date: 20131031
  Transmission Date: 20140711
  Serious: Yes (Other)
  Sender: FDA-Public Use
  Company Number: PHEH2013US018333

PATIENT
  Sex: Female

DRUGS (6)
  1. RECLAST [Suspect]
     Indication: OSTEOPOROSIS
     Dosage: UNK
     Route: 042
     Dates: start: 201003
  2. SYNTHROID [Concomitant]
     Dosage: UNK UKN, UNK
  3. LISINOPRIL [Concomitant]
  4. CALCIUM [Concomitant]
     Dosage: UNK UKN, UNK
  5. MULTIVITAMIN//VITAMINS NOS [Concomitant]
     Dosage: UNK UKN, UNK
  6. BIOTINE//BIOTIN [Concomitant]
     Dosage: UNK UKN, UNK

REACTIONS (11)
  - Presyncope [Not Recovered/Not Resolved]
  - Tooth loss [Not Recovered/Not Resolved]
  - Feeling hot [Not Recovered/Not Resolved]
  - Mastication disorder [Not Recovered/Not Resolved]
  - Rhinorrhoea [Not Recovered/Not Resolved]
  - Dry eye [Not Recovered/Not Resolved]
  - Jaw disorder [Not Recovered/Not Resolved]
  - Oedema mouth [Not Recovered/Not Resolved]
  - Lip swelling [Not Recovered/Not Resolved]
  - Cough [Not Recovered/Not Resolved]
  - Dry mouth [Not Recovered/Not Resolved]
